FAERS Safety Report 17459156 (Version 1)
Quarter: 2020Q1

REPORT INFORMATION
  Report Type: Spontaneous
  Country: US (occurrence: US)
  Receive Date: 20200225
  Receipt Date: 20200225
  Transmission Date: 20200409
  Serious: No
  Sender: FDA-Public Use
  Company Number: US-IGSA-SR10009038

PATIENT
  Age: 62 Year
  Sex: Male
  Weight: 93 kg

DRUGS (18)
  1. SUMATRIPTAN. [Concomitant]
     Active Substance: SUMATRIPTAN
  2. PROLASTIN-C LIQUID [Suspect]
     Active Substance: .ALPHA.1-PROTEINASE INHIBITOR HUMAN
     Dosage: 5580 MG, Q.WK.
     Route: 042
     Dates: start: 20190823
  3. BENZONATATE. [Concomitant]
     Active Substance: BENZONATATE
  4. PROLASTIN-C LIQUID [Suspect]
     Active Substance: .ALPHA.1-PROTEINASE INHIBITOR HUMAN
     Dosage: 5580 MG, Q.WK.
     Route: 042
     Dates: start: 20190830, end: 20190830
  5. NEXIUM [Concomitant]
     Active Substance: ESOMEPRAZOLE MAGNESIUM
  6. PREDNISONE. [Concomitant]
     Active Substance: PREDNISONE
  7. SYMBICORT [Concomitant]
     Active Substance: BUDESONIDE\FORMOTEROL FUMARATE DIHYDRATE
  8. LOSARTAN. [Concomitant]
     Active Substance: LOSARTAN
  9. MVI                                /01825701/ [Concomitant]
     Active Substance: VITAMINS
  10. PROLASTIN-C LIQUID [Suspect]
     Active Substance: .ALPHA.1-PROTEINASE INHIBITOR HUMAN
     Indication: ALPHA-1 ANTI-TRYPSIN DEFICIENCY
     Dosage: 5580 MG, Q.WK.
     Route: 042
     Dates: start: 20190816
  11. CETIRIZINE [Concomitant]
     Active Substance: CETIRIZINE HYDROCHLORIDE
  12. THEOPHYLLINE [Concomitant]
     Active Substance: THEOPHYLLINE ANHYDROUS
  13. IPRATROPIUM/ALBUTEROL [Concomitant]
     Active Substance: ALBUTEROL\IPRATROPIUM
  14. MELATONIN [Concomitant]
     Active Substance: MELATONIN
  15. GUAIFENESIN. [Concomitant]
     Active Substance: GUAIFENESIN
  16. ERYTHROMYCIN. [Concomitant]
     Active Substance: ERYTHROMYCIN
  17. ACETYLCYSTEINE. [Concomitant]
     Active Substance: ACETYLCYSTEINE
  18. HYCODAN                            /00060002/ [Concomitant]
     Active Substance: HYDROCODONE BITARTRATE

REACTIONS (14)
  - Nausea [Not Recovered/Not Resolved]
  - Eye pain [Not Recovered/Not Resolved]
  - Back pain [Not Recovered/Not Resolved]
  - Decreased appetite [Not Recovered/Not Resolved]
  - Neck pain [Not Recovered/Not Resolved]
  - Pain in extremity [Not Recovered/Not Resolved]
  - Dizziness [Not Recovered/Not Resolved]
  - Blood pressure increased [Not Recovered/Not Resolved]
  - Insomnia [Not Recovered/Not Resolved]
  - Migraine [Recovering/Resolving]
  - Photopsia [Not Recovered/Not Resolved]
  - Peripheral swelling [Not Recovered/Not Resolved]
  - Malaise [Not Recovered/Not Resolved]
  - Pyrexia [Not Recovered/Not Resolved]

NARRATIVE: CASE EVENT DATE: 20190816
